FAERS Safety Report 5898521-8 (Version None)
Quarter: 2008Q3

REPORT INFORMATION
  Report Type: 
  Country: None (occurrence: None)
  Receive Date: 20080925
  Receipt Date: 20080131
  Transmission Date: 20090109
  Serious: No
  Sender: FDA-Public Use
  Company Number: A0700585A

PATIENT
  Age: 61 Year
  Sex: Female
  Weight: 64.1 kg

DRUGS (4)
  1. WELLBUTRIN XL [Suspect]
     Indication: DEPRESSION
     Dosage: 150MG PER DAY
     Route: 048
     Dates: start: 20070930
  2. SYNTHROID [Concomitant]
  3. ASACOL [Concomitant]
  4. SIMVASTATIN [Concomitant]

REACTIONS (1)
  - ALOPECIA [None]
